FAERS Safety Report 24015253 (Version 1)
Quarter: 2024Q2

REPORT INFORMATION
  Report Type: Report from Study
  Country: US (occurrence: None)
  Receive Date: 20240626
  Receipt Date: 20240626
  Transmission Date: 20240717
  Serious: Yes (Other)
  Sender: FDA-Public Use
  Company Number: 2024A141711

PATIENT
  Sex: Female

DRUGS (1)
  1. TAGRISSO [Suspect]
     Active Substance: OSIMERTINIB
     Indication: Renal disorder
     Route: 048

REACTIONS (2)
  - Chest wall tumour [Not Recovered/Not Resolved]
  - Pain [Not Recovered/Not Resolved]
